FAERS Safety Report 17964378 (Version 1)
Quarter: 2020Q2

REPORT INFORMATION
  Report Type: Spontaneous
  Country: US (occurrence: US)
  Receive Date: 20200630
  Receipt Date: 20200630
  Transmission Date: 20200714
  Serious: Yes (Disabling, Other)
  Sender: FDA-Public Use
  Company Number: US-NEOS THERAPEUTICS, LP-2020NEO00032

PATIENT
  Age: 62 Year
  Sex: Female
  Weight: 37.19 kg

DRUGS (2)
  1. HYDROCODONE POLISTIREX AND CHLORPHENIRAMINE POLISTIREX [Suspect]
     Active Substance: CHLORPHENIRAMINE MALEATE\HYDROCODONE BITARTRATE
     Indication: CHRONIC OBSTRUCTIVE PULMONARY DISEASE
     Dosage: 0.5 ML, 2X/DAY
     Route: 048
     Dates: start: 202004, end: 202005
  2. HYDROCODONE POLISTIREX AND CHLORPHENIRAMINE POLISTIREX [Suspect]
     Active Substance: CHLORPHENIRAMINE MALEATE\HYDROCODONE BITARTRATE
     Indication: COUGH
     Dosage: 5 ML, 2X/DAY
     Route: 048
     Dates: start: 2019, end: 202004

REACTIONS (7)
  - Product dose omission [Recovered/Resolved]
  - Intentional product use issue [Recovered/Resolved]
  - Malaise [Not Recovered/Not Resolved]
  - Insurance issue [Not Recovered/Not Resolved]
  - Inability to afford medication [Not Recovered/Not Resolved]
  - Loss of personal independence in daily activities [Not Recovered/Not Resolved]
  - Weight decreased [Not Recovered/Not Resolved]

NARRATIVE: CASE EVENT DATE: 2020
